FAERS Safety Report 6434028-7 (Version None)
Quarter: 2009Q4

REPORT INFORMATION
  Report Type: 
  Country: None (occurrence: None)
  Receive Date: 20091109
  Receipt Date: 20091109
  Transmission Date: 20100525
  Serious: Yes (Other)
  Sender: FDA-Public Use
  Company Number: None

PATIENT
  Age: 71 Year
  Sex: Female
  Weight: 70.3075 kg

DRUGS (1)
  1. ACTONEL [Suspect]
     Indication: OSTEOPOROSIS
     Dosage: ONCE A MONTH
     Dates: start: 20090801

REACTIONS (15)
  - CHILLS [None]
  - COUGH [None]
  - EPISTAXIS [None]
  - HAEMOPTYSIS [None]
  - HYPERHIDROSIS [None]
  - JOINT SWELLING [None]
  - LUNG DISORDER [None]
  - PAIN [None]
  - PNEUMONIA [None]
  - TREMOR [None]
  - URETHRAL DISORDER [None]
  - URINARY HESITATION [None]
  - URTICARIA [None]
  - VISION BLURRED [None]
  - VITREOUS FLOATERS [None]
